FAERS Safety Report 7106082-0 (Version None)
Quarter: 2010Q4

REPORT INFORMATION
  Report Type: 
  Country: None (occurrence: None)
  Receive Date: 20101116
  Receipt Date: 20101111
  Transmission Date: 20110411
  Serious: Yes (Disabling, Other)
  Sender: FDA-Public Use
  Company Number: US-MERCK-0912USA00011

PATIENT
  Age: 54 Year
  Sex: Female
  Weight: 50 kg

DRUGS (5)
  1. FOSAMAX [Suspect]
     Indication: OSTEOPOROSIS
     Route: 048
     Dates: start: 20050101, end: 20060701
  2. CALCIUM (UNSPECIFIED) [Concomitant]
     Route: 065
  3. VITAMINS (UNSPECIFIED) [Concomitant]
     Route: 065
  4. ZOMETA [Suspect]
     Indication: BONE DISORDER
     Route: 042
     Dates: start: 20050101, end: 20070101
  5. ZOMETA [Suspect]
     Indication: NEOPLASM MALIGNANT
     Route: 042
     Dates: start: 20050101, end: 20070101

REACTIONS (18)
  - BONE DENSITY DECREASED [None]
  - DENTAL CARIES [None]
  - EXOSTOSIS [None]
  - GINGIVAL DISORDER [None]
  - GINGIVAL ULCERATION [None]
  - JOINT INJURY [None]
  - LUNG ADENOCARCINOMA METASTATIC [None]
  - METASTASES TO BONE [None]
  - METASTATIC PAIN [None]
  - ORAL INFECTION [None]
  - OSTEOMYELITIS [None]
  - OSTEONECROSIS OF JAW [None]
  - OSTEOPOROSIS [None]
  - TOOTH DISCOLOURATION [None]
  - TOOTH DISORDER [None]
  - TOOTHACHE [None]
  - TRISMUS [None]
  - VIITH NERVE PARALYSIS [None]
